FAERS Safety Report 6175620-7 (Version None)
Quarter: 2009Q2

REPORT INFORMATION
  Report Type: 
  Country: None (occurrence: None)
  Receive Date: 20090429
  Receipt Date: 20090417
  Transmission Date: 20091009
  Serious: Yes (Other)
  Sender: FDA-Public Use
  Company Number: UKP09000085

PATIENT
  Age: 64 Year
  Sex: Female

DRUGS (8)
  1. ACTONEL [Suspect]
     Dosage: 35 MG,  1/WEEK, ORAL
     Route: 048
     Dates: end: 20060601
  2. PRAVASTATIN SODIUM [Suspect]
     Dosage: 20 MG, 1/DAY, ORAL
     Route: 048
  3. ALL OTHER THERAPEUTIC PRODUCTS [Suspect]
     Dosage: 1 DF
  4. CARBASALATE CALCIUM (CARBASALATE CALCIUM) [Suspect]
     Dosage: 100 MG, 1 /DAY
  5. ATACAND [Suspect]
     Dosage: 8 MG, 1/DAY
  6. TEMAZEPAM [Suspect]
     Dosage: 10 MG, 1/DAY
  7. NASONEX [Suspect]
     Dosage: 100 UG, 1 /DAY, NASAL
     Route: 045
     Dates: start: 20090112
  8. VITAMIN B12 /00056201/ (CYANOCOBALAMIN) [Suspect]
     Dosage: 1 DF

REACTIONS (2)
  - LACRIMATION INCREASED [None]
  - VISUAL ACUITY REDUCED [None]
